FAERS Safety Report 6924443-7 (Version None)
Quarter: 2010Q3

REPORT INFORMATION
  Report Type: 
  Country: None (occurrence: None)
  Receive Date: 20100810
  Receipt Date: 20100726
  Transmission Date: 20110219
  Serious: Yes (Other)
  Sender: FDA-Public Use
  Company Number: DSM-2010-01090

PATIENT
  Sex: Male

DRUGS (1)
  1. VOCADO (OLMESARTAN MEDOXOMIL, AMLODIPINE BESILATE) (TABLET) (OMLESARTA [Suspect]
     Indication: HYPERTENSION
     Dosage: 5/20 MG, ORAL
     Route: 048
     Dates: start: 20010713, end: 20100719

REACTIONS (4)
  - ABDOMINAL DISCOMFORT [None]
  - ERUCTATION [None]
  - MALAISE [None]
  - PAIN [None]
